FAERS Safety Report 7919782-7 (Version None)
Quarter: 2011Q4

REPORT INFORMATION
  Report Type: 
  Country: None (occurrence: None)
  Receive Date: 20111117
  Receipt Date: 20111117
  Transmission Date: 20120403
  Serious: No
  Sender: FDA-Public Use
  Company Number: None

PATIENT
  Age: 26 Year
  Sex: Female
  Weight: 58.967 kg

DRUGS (1)
  1. BUPROPION HCL [Suspect]
     Indication: ANTIDEPRESSANT THERAPY
     Dosage: 300 MG
     Route: 048
     Dates: start: 20111103, end: 20111117

REACTIONS (11)
  - INCREASED APPETITE [None]
  - DEPRESSED MOOD [None]
  - CRYING [None]
  - PRODUCT MEASURED POTENCY ISSUE [None]
  - PRODUCT SUBSTITUTION ISSUE [None]
  - VOMITING [None]
  - IRRITABILITY [None]
  - ANGER [None]
  - SELF-INJURIOUS IDEATION [None]
  - FEELING ABNORMAL [None]
  - MIGRAINE [None]
